FAERS Safety Report 13951655 (Version 4)
Quarter: 2018Q2

REPORT INFORMATION
  Report Type: Report from Study
  Country: DE (occurrence: DE)
  Receive Date: 20170908
  Receipt Date: 20180613
  Transmission Date: 20180711
  Serious: Yes (Hospitalization, Other)
  Sender: FDA-Public Use
  Company Number: DE-BRISTOL-MYERS SQUIBB COMPANY-BMS-2017-078514

PATIENT
  Age: 56 Year
  Sex: Female

DRUGS (3)
  1. TRUXIMA [Suspect]
     Active Substance: RITUXIMAB
     Indication: RHEUMATOID ARTHRITIS
     Dosage: 1000 MG, UNK
     Route: 065
  2. ABATACEPT [Suspect]
     Active Substance: ABATACEPT
     Indication: RHEUMATOID ARTHRITIS
     Dosage: 500 MG, Q4WK
     Route: 042
     Dates: end: 20171120
  3. METHOTREXATE. [Suspect]
     Active Substance: METHOTREXATE
     Indication: RHEUMATOID ARTHRITIS
     Dosage: 2.5 MG/WEEK
     Route: 065

REACTIONS (9)
  - Monoclonal gammopathy [Unknown]
  - Bronchitis [Unknown]
  - Haemorrhagic erosive gastritis [Recovered/Resolved]
  - Thyroid cyst [Unknown]
  - Contraindicated product administered [Unknown]
  - Rheumatoid arthritis [Recovered/Resolved]
  - Tonsillitis [Unknown]
  - Plasma cell myeloma [Unknown]
  - Polyneuropathy [Unknown]

NARRATIVE: CASE EVENT DATE: 20170215
